FAERS Safety Report 6555102-0 (Version None)
Quarter: 2010Q1

REPORT INFORMATION
  Report Type: 
  Country: None (occurrence: None)
  Receive Date: 20100126
  Receipt Date: 20100126
  Transmission Date: 20100710
  Serious: Yes (Other)
  Sender: FDA-Public Use
  Company Number: None

PATIENT
  Sex: Female
  Weight: 54.4316 kg

DRUGS (1)
  1. ACTONEL [Suspect]
     Indication: OSTEOPOROSIS
     Dosage: 150 MG Q 4 WEEKS BY MOUTH
     Route: 048
     Dates: start: 20100103

REACTIONS (6)
  - ASTHENIA [None]
  - BURNING SENSATION [None]
  - COUGH [None]
  - FLUSHING [None]
  - INFLUENZA LIKE ILLNESS [None]
  - TREMOR [None]
